FAERS Safety Report 4361391-3 (Version None)
Quarter: 2004Q2

REPORT INFORMATION
  Report Type: 
  Country: None (occurrence: None)
  Receive Date: 20040521
  Receipt Date: 20040407
  Transmission Date: 20050107
  Serious: Yes (Other)
  Sender: FDA-Public Use
  Company Number: PHNU2004DE01475

PATIENT
  Age: 77 Year
  Sex: Female
  Weight: 72 kg

DRUGS (4)
  1. CO-DIOVAN [Suspect]
     Indication: HYPERTENSION
     Dosage: 1 DF, QD
     Route: 048
     Dates: start: 20040301, end: 20040501
  2. AMLODIPINE [Concomitant]
     Dosage: 5 MG/D
     Route: 048
     Dates: start: 20040301
  3. DILTIAZEM [Suspect]
     Dosage: 90 MG/D
     Route: 048
     Dates: start: 20020201, end: 20040301
  4. ASPIRIN DIREKT [Concomitant]
     Dosage: 90 MG/D
     Route: 048
     Dates: start: 20020201, end: 20040301

REACTIONS (3)
  - ERYTHEMA [None]
  - HAEMORRHAGE SUBCUTANEOUS [None]
  - PRURITUS [None]
